FAERS Safety Report 4549205-X (Version None)
Quarter: 2005Q1

REPORT INFORMATION
  Report Type: 
  Country: None (occurrence: None)
  Receive Date: 20050107
  Receipt Date: 20050107
  Transmission Date: 20050727
  Serious: Yes (Life-Threatening, Hospitalization)
  Sender: FDA-Public Use
  Company Number: None

PATIENT
  Age: 47 Year
  Sex: Female
  Weight: 56.246 kg

DRUGS (3)
  1. CELEBREX [Suspect]
     Indication: RHEUMATOID ARTHRITIS
     Dosage: 200MG 2X A DAY ORAL
     Route: 048
     Dates: start: 19990301, end: 20041201
  2. LEVOXYL [Concomitant]
  3. QUINARETIC [Concomitant]

REACTIONS (3)
  - CARDIAC ARREST [None]
  - CORONARY ARTERY THROMBOSIS [None]
  - MYOCARDIAL INFARCTION [None]
